FAERS Safety Report 9680890 (Version 1)
Quarter: 2013Q4

REPORT INFORMATION
  Report Type: Report from Study
  Country: PL (occurrence: PL)
  Receive Date: 20131111
  Receipt Date: 20131111
  Transmission Date: 20140711
  Serious: Yes (Hospitalization)
  Sender: FDA-Public Use
  Company Number: PL-ASTELLAS-2013EU009640

PATIENT
  Age: 8 Year
  Sex: Female
  Weight: 36.2 kg

DRUGS (3)
  1. SOLIFENACIN [Suspect]
     Indication: HYPERTONIC BLADDER
     Dosage: 1.8 ML, UID/QD
     Route: 048
     Dates: start: 20130617
  2. NITROFURANTOINUM [Concomitant]
     Indication: PROPHYLAXIS URINARY TRACT INFECTION
     Dosage: 25 MG, UID/QD
     Route: 048
     Dates: start: 20100707
  3. CRANBERRY EXTRACT [Concomitant]
     Indication: PROPHYLAXIS URINARY TRACT INFECTION
     Dosage: 800 MG, UID/QD
     Route: 048
     Dates: start: 20130110

REACTIONS (1)
  - Gastroenteritis [Recovered/Resolved]
